FAERS Safety Report 10983191 (Version 1)
Quarter: 2015Q2

REPORT INFORMATION
  Report Type: Spontaneous
  Country: US (occurrence: None)
  Receive Date: 20150402
  Receipt Date: 20150402
  Transmission Date: 20150821
  Serious: Yes (Disabling)
  Sender: FDA-Public Use
  Company Number: None

PATIENT
  Age: 52 Year
  Sex: Female
  Weight: 72.58 kg

DRUGS (5)
  1. BIOTIN [Concomitant]
     Active Substance: BIOTIN
  2. MULTI VITAMIN [Concomitant]
     Active Substance: VITAMINS
  3. IBUPROFEN. [Suspect]
     Active Substance: IBUPROFEN
     Indication: ORAL PAIN
     Dosage: 1 TABLET THREE TIMES DAILY TAKEN BY MOUTH
     Route: 048
     Dates: start: 20150305, end: 20150306
  4. PREDNISONE. [Concomitant]
     Active Substance: PREDNISONE
  5. VITAMIN D [Concomitant]
     Active Substance: CHOLECALCIFEROL

REACTIONS (5)
  - Deafness [None]
  - Vomiting [None]
  - Tinnitus [None]
  - Inappropriate schedule of drug administration [None]
  - Overdose [None]

NARRATIVE: CASE EVENT DATE: 20150305
